FAERS Safety Report 4947828-7 (Version None)
Quarter: 2006Q1

REPORT INFORMATION
  Report Type: 
  Country: None (occurrence: None)
  Receive Date: 20060320
  Receipt Date: 20030107
  Transmission Date: 20060701
  Serious: Yes (Life-Threatening, Hospitalization)
  Sender: FDA-Public Use
  Company Number: PHFR2003IE00498

PATIENT
  Age: 31 Year
  Sex: Male

DRUGS (6)
  1. CLOZARIL [Suspect]
     Indication: SCHIZOPHRENIA
     Dosage: 450MG/DAY
     Route: 048
     Dates: start: 19960522, end: 20021229
  2. CLOZARIL [Suspect]
     Dosage: 80-100X100MG/OVERDOSE
     Route: 048
     Dates: start: 20021228, end: 20021229
  3. CLOZARIL [Suspect]
     Dosage: 5.5 G
     Route: 048
     Dates: start: 20060313
  4. EPILIM [Suspect]
     Indication: PETIT MAL EPILEPSY
     Dosage: 100MG/DAY
     Route: 048
  5. EPILIM [Suspect]
     Dosage: OVERDOSE
  6. LEXAPRO [Suspect]
     Dosage: OVERDOSE

REACTIONS (17)
  - BLOOD BICARBONATE DECREASED [None]
  - BLOOD CHLORIDE INCREASED [None]
  - BLOOD ELECTROLYTES ABNORMAL [None]
  - BLOOD UREA ABNORMAL [None]
  - BLOOD UREA INCREASED [None]
  - CARBON DIOXIDE DECREASED [None]
  - COMA [None]
  - HAEMATOCRIT DECREASED [None]
  - HAEMOGLOBIN DECREASED [None]
  - LYMPHOCYTE COUNT DECREASED [None]
  - NEUTROPHIL COUNT INCREASED [None]
  - OVERDOSE [None]
  - PNEUMONIA ASPIRATION [None]
  - PO2 INCREASED [None]
  - RED BLOOD CELL COUNT DECREASED [None]
  - TONIC CLONIC MOVEMENTS [None]
  - URINARY RETENTION [None]
